FAERS Safety Report 5258424-9 (Version None)
Quarter: 2007Q1

REPORT INFORMATION
  Report Type: 
  Country: None (occurrence: None)
  Receive Date: 20070308
  Receipt Date: 20070223
  Transmission Date: 20070707
  Serious: Yes (Hospitalization, Other)
  Sender: FDA-Public Use
  Company Number: PHFR2007GB00912

PATIENT
  Age: 10 Year
  Sex: Male

DRUGS (2)
  1. TEGRETOL [Suspect]
     Indication: EPILEPSY
     Dosage: 7.5 ML, BID
     Route: 048
  2. EPILIM [Concomitant]
     Indication: EPILEPSY
     Route: 065

REACTIONS (3)
  - BLOOD MERCURY ABNORMAL [None]
  - CONDITION AGGRAVATED [None]
  - EPILEPSY [None]
